FAERS Safety Report 4365087-3 (Version None)
Quarter: 2004Q2

REPORT INFORMATION
  Report Type: 
  Country: None (occurrence: None)
  Receive Date: 20040520
  Receipt Date: 20040507
  Transmission Date: 20050107
  Serious: Yes (Other)
  Sender: FDA-Public Use
  Company Number: ENT-2004-0089

PATIENT
  Age: 80 Year
  Sex: Male

DRUGS (4)
  1. COMTAN (ENTACAPONE0 [Suspect]
     Indication: PARKINSON'S DISEASE
     Dosage: TWICE DAILY; ORAL
     Route: 048
     Dates: start: 20040301
  2. SIFROL [Concomitant]
  3. SINEMET [Concomitant]
  4. RISPERIDONE [Concomitant]

REACTIONS (3)
  - ABNORMAL BEHAVIOUR [None]
  - CONFUSIONAL STATE [None]
  - HALLUCINATION, VISUAL [None]
